FAERS Safety Report 6705337-9 (Version None)
Quarter: 2010Q2

REPORT INFORMATION
  Report Type: 
  Country: None (occurrence: None)
  Receive Date: 20100501
  Receipt Date: 20100420
  Transmission Date: 20101027
  Serious: Yes (Other)
  Sender: FDA-Public Use
  Company Number: US-ELI_LILLY_AND_COMPANY-US201004006219

PATIENT
  Sex: Male

DRUGS (9)
  1. CYMBALTA [Suspect]
     Indication: GENERALISED ANXIETY DISORDER
     Dosage: 90 MG, DAILY (1/D)
     Dates: start: 20100205, end: 20100301
  2. CYMBALTA [Suspect]
     Dosage: 60 MG, DAILY (1/D)
     Dates: start: 20100301, end: 20100326
  3. CYMBALTA [Suspect]
     Dosage: 30 MG, DAILY (1/D)
     Dates: start: 20100326, end: 20100401
  4. LEXAPRO [Concomitant]
     Dosage: 10 MG, DAILY (1/D)
     Dates: start: 20100301, end: 20100301
  5. LEXAPRO [Concomitant]
     Dosage: 20 MG, DAILY (1/D)
     Dates: start: 20100301, end: 20100301
  6. WELLBUTRIN [Concomitant]
     Dosage: 1 D/F, AS NEEDED
  7. LORAZEPAM [Concomitant]
     Indication: SLEEP DISORDER
     Dosage: 4 MG, EACH EVENING
  8. LIPITOR [Concomitant]
     Indication: HYPERCHOLESTEROLAEMIA
     Dosage: 80 MG, DAILY (1/D)
  9. ASPIRIN [Concomitant]
     Indication: HYPERCHOLESTEROLAEMIA
     Dosage: 81 MG, DAILY (1/D)

REACTIONS (4)
  - DISSOCIATION [None]
  - DRUG INEFFECTIVE [None]
  - DRUG WITHDRAWAL SYNDROME [None]
  - ROAD TRAFFIC ACCIDENT [None]
